FAERS Safety Report 22598494 (Version 1)
Quarter: 2023Q2

REPORT INFORMATION
  Report Type: Spontaneous
  Country: HU (occurrence: HU)
  Receive Date: 20230614
  Receipt Date: 20230614
  Transmission Date: 20230721
  Serious: Yes (Other)
  Sender: FDA-Public Use
  Company Number: HU-ROCHE-2589513

PATIENT
  Age: 52 Year
  Sex: Male

DRUGS (8)
  1. CISPLATIN [Suspect]
     Active Substance: CISPLATIN
     Indication: Waldenstrom^s macroglobulinaemia
  2. METHOTREXATE [Suspect]
     Active Substance: METHOTREXATE
     Indication: Bing-Neel syndrome
  3. CYTARABINE [Suspect]
     Active Substance: CYTARABINE
     Indication: Waldenstrom^s macroglobulinaemia
  4. DEXAMETHASONE [Suspect]
     Active Substance: DEXAMETHASONE
     Indication: Bing-Neel syndrome
  5. RITUXIMAB [Suspect]
     Active Substance: RITUXIMAB
     Indication: Bing-Neel syndrome
  6. ENTECAVIR [Concomitant]
     Active Substance: ENTECAVIR
     Indication: Hepatitis B reactivation
  7. METHOTREXATE [Suspect]
     Active Substance: METHOTREXATE
     Indication: Waldenstrom^s macroglobulinaemia
  8. RITUXIMAB [Suspect]
     Active Substance: RITUXIMAB
     Indication: Waldenstrom^s macroglobulinaemia

REACTIONS (3)
  - Hepatitis B reactivation [Unknown]
  - Arachnoiditis [Recovering/Resolving]
  - Off label use [Unknown]
